FAERS Safety Report 9348005 (Version 1)
Quarter: 2013Q2

REPORT INFORMATION
  Report Type: Spontaneous
  Country: CA (occurrence: CA)
  Receive Date: 20130614
  Receipt Date: 20130614
  Transmission Date: 20140414
  Serious: Yes (Hospitalization)
  Sender: FDA-Public Use
  Company Number: CA-TEVA-411892USA

PATIENT
  Age: 75 Year
  Sex: Male
  Weight: 65 kg

DRUGS (10)
  1. CLOPIDOGREL [Suspect]
     Dosage: 75 MILLIGRAM DAILY;
     Route: 048
  2. ACETYLCYSTINE SOLUTION [Concomitant]
     Dosage: SOLUTION INHALATION
  3. ADALAT XL [Concomitant]
  4. ASA [Concomitant]
  5. BISOPROLOL [Concomitant]
  6. COVERSYL [Concomitant]
  7. HUMULIN R INJ [Concomitant]
     Dosage: LIQUID INTRAMUSCULAR
  8. LIPITOR [Concomitant]
  9. ONGLYZA FILM-COATED [Concomitant]
  10. PANTOLOC [Concomitant]
     Dosage: ENTERIC COATED

REACTIONS (5)
  - Oedema peripheral [Recovered/Resolved]
  - Pruritus [Recovered/Resolved]
  - Rash follicular [Recovered/Resolved]
  - Rash papular [Recovered/Resolved]
  - Skin plaque [Recovered/Resolved]
